FAERS Safety Report 9114264 (Version 2)
Quarter: 2016Q1

REPORT INFORMATION
  Report Type: Spontaneous
  Country: NO (occurrence: NO)
  Receive Date: 20130208
  Receipt Date: 20160113
  Transmission Date: 20160526
  Serious: Yes (Death, Other)
  Sender: FDA-Public Use
  Company Number: NO-BRISTOL-MYERS SQUIBB COMPANY-17348335

PATIENT

DRUGS (5)
  1. ERY MAX [Suspect]
     Active Substance: ERYTHROMYCIN
     Indication: PRODUCT USED FOR UNKNOWN INDICATION
     Route: 064
  2. ABBOTICIN [Suspect]
     Active Substance: ERYTHROMYCIN STEARATE
     Indication: PRODUCT USED FOR UNKNOWN INDICATION
     Route: 064
  3. AMPICILLIN TRIHYDRATE. [Suspect]
     Active Substance: AMPICILLIN TRIHYDRATE
     Indication: PRODUCT USED FOR UNKNOWN INDICATION
     Route: 064
  4. YASMIN [Suspect]
     Active Substance: DROSPIRENONE\ETHINYL ESTRADIOL
     Indication: PRODUCT USED FOR UNKNOWN INDICATION
     Route: 064
  5. GENTAMICIN. [Suspect]
     Active Substance: GENTAMICIN
     Indication: PRODUCT USED FOR UNKNOWN INDICATION
     Route: 064

REACTIONS (6)
  - Exomphalos [Fatal]
  - Spina bifida cystica [Fatal]
  - Cleft lip and palate [Not Recovered/Not Resolved]
  - Anencephaly [Fatal]
  - Foetal exposure during pregnancy [Unknown]
  - Congenital central nervous system anomaly [Fatal]
